FAERS Safety Report 24870994 (Version 1)
Quarter: 2025Q1

REPORT INFORMATION
  Report Type: Spontaneous
  Country: IN (occurrence: IN)
  Receive Date: 20250121
  Receipt Date: 20250121
  Transmission Date: 20250409
  Serious: Yes (Other)
  Sender: AVYXA HOLDINGS, LLC
  Company Number: IN-AVYXA HOLDINGS, LLC-2025AVY000004

PATIENT
  Age: 72 Year
  Sex: Female

DRUGS (2)
  1. DOCETAXEL [Suspect]
     Active Substance: DOCETAXEL
     Indication: Uterine cancer
     Route: 042
  2. CARBOPLATIN [Suspect]
     Active Substance: CARBOPLATIN
     Indication: Uterine cancer
     Route: 042

REACTIONS (2)
  - Retinitis pigmentosa [Not Recovered/Not Resolved]
  - Product use in unapproved indication [Unknown]
